FAERS Safety Report 10961080 (Version 1)
Quarter: 2015Q1

REPORT INFORMATION
  Report Type: Spontaneous
  Country: US (occurrence: None)
  Receive Date: 20150326
  Receipt Date: 20150326
  Transmission Date: 20150721
  Serious: No
  Sender: FDA-Public Use
  Company Number: None

PATIENT
  Age: 55 Year
  Sex: Male
  Weight: 68.49 kg

DRUGS (1)
  1. KRYSTEXXA [Suspect]
     Active Substance: PEGLOTICASE
     Indication: GOUT
     Dosage: Q14D
     Route: 042
     Dates: start: 20150305, end: 20150309

REACTIONS (8)
  - Hyperhidrosis [None]
  - Oxygen saturation decreased [None]
  - Dyspnoea [None]
  - Cough [None]
  - Pruritus [None]
  - Flushing [None]
  - Chest discomfort [None]
  - Nausea [None]

NARRATIVE: CASE EVENT DATE: 20150319
